FAERS Safety Report 13394761 (Version 1)
Quarter: 2017Q2

REPORT INFORMATION
  Report Type: Spontaneous
  Country: VN (occurrence: VN)
  Receive Date: 20170403
  Receipt Date: 20170403
  Transmission Date: 20170830
  Serious: Yes (Death, Hospitalization, Other)
  Sender: FDA-Public Use
  Company Number: VN-009507513-1703VNM013045

PATIENT
  Age: 33 Year
  Sex: Male

DRUGS (6)
  1. SOLU-MEDROL [Suspect]
     Active Substance: METHYLPREDNISOLONE SODIUM SUCCINATE
     Indication: ANAESTHETIC PREMEDICATION
     Dosage: 40 MG, ONCE
     Route: 042
     Dates: start: 20161225, end: 20161225
  2. MIDAZOLAM [Suspect]
     Active Substance: MIDAZOLAM HYDROCHLORIDE
     Indication: ANAESTHETIC PREMEDICATION
     Dosage: 5 MG, ONCE
     Dates: start: 20161225, end: 20161225
  3. ATROPINE. [Suspect]
     Active Substance: ATROPINE
     Indication: ANAESTHETIC PREMEDICATION
     Dosage: 0.25 MG, ONCE
     Dates: start: 20161225, end: 20161225
  4. ESMERON [Suspect]
     Active Substance: ROCURONIUM BROMIDE
     Dosage: 30 MG, ONCE
     Dates: start: 20161225, end: 20161225
  5. DIPRIVAN [Suspect]
     Active Substance: PROPOFOL
     Dosage: 100 MG, ONCE
     Dates: start: 20161225, end: 20161225
  6. CHLOROFORM [Suspect]
     Active Substance: CHLOROFORM
     Dosage: UNK, ONCE
     Dates: start: 20161225, end: 20161225

REACTIONS (3)
  - Respiratory failure [Fatal]
  - Anaphylactic shock [Fatal]
  - Circulatory collapse [Fatal]

NARRATIVE: CASE EVENT DATE: 20161225
